FAERS Safety Report 6642480-7 (Version None)
Quarter: 2010Q1

REPORT INFORMATION
  Report Type: 
  Country: None (occurrence: None)
  Receive Date: 20100319
  Receipt Date: 20100310
  Transmission Date: 20100710
  Serious: Yes (Hospitalization, Other)
  Sender: FDA-Public Use
  Company Number: IT-ABBOTT-09P-083-0609916-00

PATIENT
  Sex: Male

DRUGS (2)
  1. KLACID TABLETS [Suspect]
     Indication: PYREXIA
     Route: 048
     Dates: start: 20090907, end: 20090909
  2. CLENIL [Suspect]
     Indication: PHARYNGITIS
     Dates: start: 20090907, end: 20090909

REACTIONS (9)
  - APHTHOUS STOMATITIS [None]
  - BREATH ODOUR [None]
  - CONJUNCTIVITIS [None]
  - ORAL DISORDER [None]
  - ORAL HERPES [None]
  - PHARYNGITIS [None]
  - PYREXIA [None]
  - STOMATITIS [None]
  - TONGUE COATED [None]
